FAERS Safety Report 8363177-1 (Version None)
Quarter: 2012Q2

REPORT INFORMATION
  Report Type: 
  Country: None (occurrence: None)
  Receive Date: 20120516
  Receipt Date: 20111111
  Transmission Date: 20120825
  Serious: Yes (Hospitalization)
  Sender: FDA-Public Use
  Company Number: US-ALEXION-A201101674

PATIENT
  Sex: Female

DRUGS (18)
  1. ALPRAZOLAM [Concomitant]
     Dosage: 1 MG, UNK
  2. CARVEDILOL [Concomitant]
     Dosage: 6.25 MG, UNK
  3. DIPHENOXYLATE HCL AND ATROPINE SULFATE [Concomitant]
  4. PROMETHAZINE [Concomitant]
     Dosage: 25 MG, UNK
  5. DILAUDID [Concomitant]
     Dosage: 2 MG, UNK
  6. EXJADE [Concomitant]
     Indication: IRON OVERLOAD
     Dosage: 500 MG, UNK
  7. SOLIRIS [Suspect]
     Indication: PAROXYSMAL NOCTURNAL HAEMOGLOBINURIA
     Dosage: 1200 MG, Q2W
     Route: 042
  8. BUTALBITAL ACETAMINOPHEN AND CAFFEINE [Concomitant]
  9. HYDROCODONE BITARTRATE + ACETAMINOPHEN [Concomitant]
     Dosage: 7.5 MG / 325 MG, UNK
  10. CARAFATE [Concomitant]
     Dosage: 1 GRAM, UNK
  11. CYCLOBENZAPRINE [Concomitant]
     Dosage: 10 MG, UNK
  12. PRILOSEC [Concomitant]
     Indication: PEPTIC ULCER
     Dosage: 40 MG, UNK
  13. ZOLPIDEM [Concomitant]
     Dosage: 10 MG, UNK
  14. AMBIEN [Concomitant]
     Dosage: 10 MG, UNK
  15. ARIXTRA [Concomitant]
     Indication: HYPERCOAGULATION
     Dosage: 10MG/0.8 ML, UNK
     Route: 058
  16. LASIX [Concomitant]
     Dosage: 20 MG, UNK
  17. ATIVAN [Concomitant]
     Indication: ANXIETY
     Dosage: UNK, PRN
  18. TRAMADOL HYDROCHLORIDE [Concomitant]
     Dosage: 50 MG, UNK

REACTIONS (9)
  - DIPLOPIA [None]
  - FATIGUE [None]
  - NAUSEA [None]
  - HEADACHE [None]
  - ANAEMIA [None]
  - FLUID RETENTION [None]
  - PAIN [None]
  - HAEMOLYSIS [None]
  - IRON OVERLOAD [None]
